FAERS Safety Report 23894702 (Version 2)
Quarter: 2024Q2

REPORT INFORMATION
  Report Type: Spontaneous
  Country: US (occurrence: US)
  Receive Date: 20240524
  Receipt Date: 20240606
  Transmission Date: 20240716
  Serious: No
  Sender: FDA-Public Use
  Company Number: US-009507513-2405USA005559

PATIENT
  Age: 78 Year
  Sex: Male

DRUGS (1)
  1. WELIREG [Suspect]
     Active Substance: BELZUTIFAN
     Indication: Renal cancer
     Dosage: 120 MILLIGRAM, QD
     Route: 048
     Dates: start: 202403, end: 2024

REACTIONS (3)
  - Respiration abnormal [Unknown]
  - Confusional state [Unknown]
  - Fatigue [Unknown]

NARRATIVE: CASE EVENT DATE: 20240101
